FAERS Safety Report 4549366-2 (Version None)
Quarter: 2004Q4

REPORT INFORMATION
  Report Type: 
  Country: None (occurrence: None)
  Receive Date: 20041230
  Receipt Date: 20040702
  Transmission Date: 20050328
  Serious: Yes (Death)
  Sender: FDA-Public Use
  Company Number: 04-07-0950

PATIENT
  Age: 49 Year
  Sex: Female
  Weight: 113.3993 kg

DRUGS (4)
  1. CLOZAPINE [Suspect]
     Indication: SCHIZOAFFECTIVE DISORDER
     Dosage: 575MG QD ORAL
     Route: 048
     Dates: start: 20011001, end: 20040112
  2. DEPAKOTE ER [Concomitant]
  3. KLONOPIN [Concomitant]
  4. REMERON [Concomitant]

REACTIONS (1)
  - NO ADVERSE DRUG EFFECT [None]
